FAERS Safety Report 9315679 (Version 1)
Quarter: 2013Q2

REPORT INFORMATION
  Report Type: Spontaneous
  Country: CN (occurrence: CN)
  Receive Date: 20130529
  Receipt Date: 20130529
  Transmission Date: 20140414
  Serious: Yes (Other)
  Sender: FDA-Public Use
  Company Number: CN-ELI_LILLY_AND_COMPANY-CN201305008563

PATIENT
  Age: 64 Year
  Sex: Female

DRUGS (1)
  1. HUMULIN 30% REGULAR, 70% NPH [Suspect]
     Indication: DIABETES MELLITUS
     Dosage: 18 U, BID
     Route: 058
     Dates: start: 20120625, end: 20120630

REACTIONS (2)
  - Papule [Unknown]
  - Pruritus generalised [Recovering/Resolving]
